FAERS Safety Report 21792844 (Version 1)
Quarter: 2022Q4

REPORT INFORMATION
  Report Type: Spontaneous
  Country: IT (occurrence: None)
  Receive Date: 20221229
  Receipt Date: 20221229
  Transmission Date: 20230113
  Serious: Yes (Hospitalization)
  Sender: FDA-Public Use
  Company Number: None

PATIENT
  Age: 54 Year
  Sex: Female

DRUGS (1)
  1. OCREVUS [Suspect]
     Active Substance: OCRELIZUMAB
     Indication: Relapsing multiple sclerosis
     Dosage: OCREVUS 600MG EVERY SIX MONTHS (ADMINISTERED ON 8/2021 AND 2/22).
     Route: 065
     Dates: start: 202102, end: 202202

REACTIONS (1)
  - Adenocarcinoma pancreas [Recovering/Resolving]

NARRATIVE: CASE EVENT DATE: 20220501
